FAERS Safety Report 11966812 (Version 2)
Quarter: 2016Q1

REPORT INFORMATION
  Report Type: Report from Study
  Country: DE (occurrence: DE)
  Receive Date: 20160127
  Receipt Date: 20160331
  Transmission Date: 20160526
  Serious: Yes (Other)
  Sender: FDA-Public Use
  Company Number: DE-CELGENE-DEU-2016013675

PATIENT
  Age: 50 Year
  Sex: Female

DRUGS (1)
  1. ABRAXANE [Suspect]
     Active Substance: PACLITAXEL
     Indication: BREAST CANCER
     Dosage: 216 MG
     Route: 041
     Dates: start: 20150505, end: 20150623

REACTIONS (1)
  - Endometrial stromal sarcoma [Recovered/Resolved]

NARRATIVE: CASE EVENT DATE: 20150630
